FAERS Safety Report 17574616 (Version 3)
Quarter: 2020Q2

REPORT INFORMATION
  Report Type: Report from Study
  Country: JP (occurrence: JP)
  Receive Date: 20200324
  Receipt Date: 20200408
  Transmission Date: 20200713
  Serious: Yes (Hospitalization)
  Sender: FDA-Public Use
  Company Number: JP-TAKEDA-2020TJP005986AA

PATIENT
  Age: 61 Year
  Sex: Female
  Weight: 40.9 kg

DRUGS (16)
  1. BETAMETHASONE. [Concomitant]
     Active Substance: BETAMETHASONE
     Indication: RASH
     Dosage: 0.05 PERCENT
     Route: 062
  2. SODIUM GUALENATE HYDRATE [Concomitant]
     Active Substance: SODIUM GUALENATE MONOHYDRATE
     Indication: PHARYNGEAL ULCERATION
     Dosage: 2 GRAM
     Route: 049
     Dates: start: 20191120
  3. LEDERCORT                          /00031902/ [Concomitant]
     Indication: FACE OEDEMA
     Dosage: UNK UNK, BID
     Route: 062
     Dates: start: 20191203
  4. SAHNE [Concomitant]
     Indication: FACE OEDEMA
     Dosage: UNK UNK, BID
     Route: 062
     Dates: start: 20191203
  5. CALFINA [Concomitant]
     Active Substance: ALFACALCIDOL
     Indication: METASTASES TO BONE
     Dosage: 0.5 MICROGRAM, QD
     Route: 048
     Dates: start: 20190802
  6. RANMARK [Concomitant]
     Active Substance: DENOSUMAB
     Indication: METASTASES TO BONE
     Dosage: 120 MILLIGRAM, Q4WEEKS
     Route: 058
     Dates: start: 20190826
  7. ASPARA-CA [Concomitant]
     Active Substance: CALCIUM ASPARTATE
     Indication: OSTEOPOROSIS
     Dosage: 200 MILLIGRAM, BID
     Route: 048
  8. CALONAL [Concomitant]
     Active Substance: ACETAMINOPHEN
     Indication: PYREXIA
     Dosage: 200 MILLIGRAM, TID
     Route: 048
     Dates: start: 20200311
  9. MOHRUS [Concomitant]
     Active Substance: KETOPROFEN
     Indication: CANCER PAIN
     Dosage: 1 DOSAGE FORM
     Route: 062
  10. HEPARINOID [Concomitant]
     Active Substance: CHONDROITIN SULFATE (BOVINE)
     Indication: FACE OEDEMA
     Dosage: UNK UNK, BID
     Route: 062
     Dates: start: 20191203
  11. NEO-MEDROL                         /00259601/ [Concomitant]
     Indication: FACE OEDEMA
     Dosage: UNK UNK, BID
     Route: 062
     Dates: start: 20191203
  12. LAC-B [Concomitant]
     Active Substance: BIFIDOBACTERIUM SPP.
     Indication: PROPHYLAXIS AGAINST DIARRHOEA
     Dosage: 1 GRAM, TID
     Route: 048
     Dates: start: 20190826
  13. BRIGATINIB [Suspect]
     Active Substance: BRIGATINIB
     Indication: LUNG ADENOCARCINOMA
     Dosage: 90 MILLIGRAM, QD
     Route: 048
     Dates: start: 20190703, end: 20190709
  14. BRIGATINIB [Suspect]
     Active Substance: BRIGATINIB
     Dosage: 90 MILLIGRAM, QD
     Route: 048
     Dates: start: 20200401
  15. BRIGATINIB [Suspect]
     Active Substance: BRIGATINIB
     Dosage: 180 MILLIGRAM, QD
     Route: 048
     Dates: start: 20190710
  16. LOXOPROFEN SODIUM [Concomitant]
     Active Substance: LOXOPROFEN SODIUM
     Indication: MYALGIA
     Dosage: 100 MILLIGRAM, QD
     Route: 062
     Dates: start: 20200311

REACTIONS (1)
  - Hepatic infection [Recovering/Resolving]

NARRATIVE: CASE EVENT DATE: 20200311
